FAERS Safety Report 4288915-9 (Version None)
Quarter: 2004Q1

REPORT INFORMATION
  Report Type: 
  Country: None (occurrence: None)
  Receive Date: 20040205
  Receipt Date: 20040121
  Transmission Date: 20041129
  Serious: Yes (Other)
  Sender: FDA-Public Use
  Company Number: PHNU2004DE00612

PATIENT
  Age: 79 Year
  Sex: Male

DRUGS (2)
  1. VISUDYNE [Suspect]
     Indication: MACULAR DEGENERATION
     Dates: start: 20030602, end: 20030602
  2. FALITHROM [Suspect]

REACTIONS (3)
  - CHOROIDAL NEOVASCULARISATION [None]
  - DRUG INTERACTION [None]
  - RETINAL HAEMORRHAGE [None]
